FAERS Safety Report 6159488-0 (Version None)
Quarter: 2009Q2

REPORT INFORMATION
  Report Type: 
  Country: None (occurrence: None)
  Receive Date: 20090420
  Receipt Date: 20090403
  Transmission Date: 20091009
  Serious: Yes (Other)
  Sender: FDA-Public Use
  Company Number: US-BAYER-200916711NA

PATIENT
  Age: 42 Year
  Sex: Female

DRUGS (1)
  1. BETASERON [Suspect]
     Indication: SECONDARY PROGRESSIVE MULTIPLE SCLEROSIS
     Dosage: TOTAL DAILY DOSE: 8 MIU
     Route: 058
     Dates: start: 19940203

REACTIONS (6)
  - DIABETES MELLITUS [None]
  - INJECTION SITE ABSCESS [None]
  - INJECTION SITE NECROSIS [None]
  - INJECTION SITE RASH [None]
  - INJECTION SITE URTICARIA [None]
  - SEPSIS [None]
